FAERS Safety Report 10732268 (Version 1)
Quarter: 2015Q1

REPORT INFORMATION
  Report Type: Spontaneous
  Country: US (occurrence: US)
  Receive Date: 20150123
  Receipt Date: 20150123
  Transmission Date: 20150721
  Serious: Yes (Hospitalization)
  Sender: FDA-Public Use
  Company Number: US-BANPHARM-20153357

PATIENT
  Age: 33 Year
  Sex: Male

DRUGS (1)
  1. LOPERAMIDE UNKNOWN PRODUCT [Suspect]
     Active Substance: LOPERAMIDE
     Indication: OFF LABEL USE
     Dosage: 60-100 TABLETS, 2 MG, WITHIN 6 H

REACTIONS (6)
  - Intentional overdose [None]
  - Drug abuse [Unknown]
  - Miosis [Unknown]
  - Electrocardiogram QT prolonged [Unknown]
  - Dyspnoea [Unknown]
  - Electrocardiogram QRS complex prolonged [Unknown]
